FAERS Safety Report 7171061-4 (Version None)
Quarter: 2010Q4

REPORT INFORMATION
  Report Type: 
  Country: None (occurrence: None)
  Receive Date: 20101217
  Receipt Date: 20101208
  Transmission Date: 20110411
  Serious: Yes (Other)
  Sender: FDA-Public Use
  Company Number: GXKR2010GB13957

PATIENT
  Sex: Male

DRUGS (2)
  1. METHOTREXATE [Suspect]
     Indication: PSORIATIC ARTHROPATHY
     Route: 065
  2. HUMIRA [Suspect]
     Indication: PSORIATIC ARTHROPATHY
     Dosage: UNK
     Route: 065
     Dates: start: 20091101

REACTIONS (2)
  - ALOPECIA [None]
  - PSORIATIC ARTHROPATHY [None]
